FAERS Safety Report 19886473 (Version 1)
Quarter: 2021Q3

REPORT INFORMATION
  Report Type: Spontaneous
  Country: ES (occurrence: ES)
  Receive Date: 20210927
  Receipt Date: 20210927
  Transmission Date: 20211014
  Serious: Yes (Other)
  Sender: FDA-Public Use
  Company Number: ES-MYLANLABS-2021M1064571

PATIENT
  Age: 59 Year
  Sex: Male
  Weight: 76 kg

DRUGS (3)
  1. VALSARTAN NORMON [Concomitant]
     Dosage: 80 MILLIGRAM, QD
     Route: 048
  2. OMEPRAZOL CINFAMED [Concomitant]
     Active Substance: OMEPRAZOLE
     Dosage: 20 MILLIGRAM, Q6H
     Route: 048
  3. SORAFENIB MYLAN 200 MG COMPRIMIDOS RECUBIERTOS CON PELICULA EFG [Suspect]
     Active Substance: SORAFENIB
     Indication: HEPATIC CANCER
     Dosage: 400 MILLIGRAM, BID
     Route: 048
     Dates: start: 20210319

REACTIONS (1)
  - Bladder wall calcification [Not Recovered/Not Resolved]

NARRATIVE: CASE EVENT DATE: 20210505
